FAERS Safety Report 5076972-1 (Version None)
Quarter: 2006Q3

REPORT INFORMATION
  Report Type: 
  Country: None (occurrence: None)
  Receive Date: 20060810
  Receipt Date: 20060707
  Transmission Date: 20061208
  Serious: Yes (Hospitalization)
  Sender: FDA-Public Use
  Company Number: JP-JPN-A200602546

PATIENT
  Age: 68 Year
  Sex: Male

DRUGS (10)
  1. PAXIL [Suspect]
     Indication: DEPRESSION
     Dosage: 10MG PER DAY
     Route: 048
     Dates: start: 20060626, end: 20060707
  2. RANITIDINE [Suspect]
     Indication: GASTRIC ULCER
     Dosage: 150MG TWICE PER DAY
     Route: 048
  3. THYRADIN S [Suspect]
     Indication: HYPOTHYROIDISM
     Dosage: 50MCG TWICE PER DAY
     Route: 048
  4. BLOPRESS [Suspect]
     Indication: HYPERTENSION
     Dosage: 8MG PER DAY
     Route: 048
  5. SELBEX [Suspect]
     Indication: GASTRIC ULCER
     Dosage: .5G THREE TIMES PER DAY
     Route: 048
  6. GASMOTIN [Suspect]
     Indication: GASTRIC ULCER
     Dosage: 5MG THREE TIMES PER DAY
     Route: 048
  7. MECOBALAMIN [Suspect]
     Dosage: 500MCG THREE TIMES PER DAY
     Route: 048
  8. NORVASC [Suspect]
     Indication: HYPERTENSION
     Dosage: 2.5MG PER DAY
     Route: 048
  9. MYSLEE [Suspect]
     Indication: INSOMNIA
     Dosage: 10MG PER DAY
     Route: 048
  10. DEPAS [Suspect]
     Indication: INSOMNIA
     Dosage: .5MG PER DAY
     Route: 048

REACTIONS (3)
  - HYPONATRAEMIA [None]
  - INAPPROPRIATE ANTIDIURETIC HORMONE SECRETION [None]
  - MALAISE [None]
